FAERS Safety Report 18610245 (Version 1)
Quarter: 2020Q4

REPORT INFORMATION
  Report Type: Spontaneous
  Country: US (occurrence: US)
  Receive Date: 20201214
  Receipt Date: 20201214
  Transmission Date: 20210114
  Serious: Yes (Other)
  Sender: FDA-Public Use
  Company Number: US-ROCHE-2731567

PATIENT
  Age: 47 Year
  Sex: Female

DRUGS (1)
  1. HEMLIBRA [Suspect]
     Active Substance: EMICIZUMAB-KXWH
     Indication: FACTOR VIII DEFICIENCY
     Dosage: 60 MG/ 0.4 ML; HEMLIBRA SDV
     Route: 058
     Dates: start: 202006

REACTIONS (2)
  - Arthralgia [Unknown]
  - Haemarthrosis [Unknown]

NARRATIVE: CASE EVENT DATE: 202011
